FAERS Safety Report 13060875 (Version 1)
Quarter: 2016Q4

REPORT INFORMATION
  Report Type: Report from Study
  Country: AU (occurrence: AU)
  Receive Date: 20161225
  Receipt Date: 20161225
  Transmission Date: 20170207
  Serious: Yes (Death, Other)
  Sender: FDA-Public Use
  Company Number: AU-ROCHE-1871373

PATIENT

DRUGS (2)
  1. PREDNISOLONE. [Suspect]
     Active Substance: PREDNISOLONE
     Indication: AUTOIMMUNE HEPATITIS
     Route: 065
  2. MYCOPHENOLATE MOFETIL. [Suspect]
     Active Substance: MYCOPHENOLATE MOFETIL
     Indication: AUTOIMMUNE HEPATITIS
     Route: 065

REACTIONS (9)
  - Neuropsychiatric symptoms [Unknown]
  - Lymphoproliferative disorder [Unknown]
  - Skin cancer [Unknown]
  - Drug ineffective [Unknown]
  - Death [Fatal]
  - Gastrointestinal toxicity [Unknown]
  - Cytopenia [Unknown]
  - Infection [Unknown]
  - Treatment failure [Unknown]
